APPROVED DRUG PRODUCT: OLANZAPINE
Active Ingredient: OLANZAPINE
Strength: 10MG/VIAL
Dosage Form/Route: POWDER;INTRAMUSCULAR
Application: A201741 | Product #001 | TE Code: AP
Applicant: AMERICAN REGENT INC
Approved: Mar 20, 2012 | RLD: No | RS: No | Type: RX